FAERS Safety Report 17832478 (Version 1)
Quarter: 2020Q2

REPORT INFORMATION
  Report Type: Spontaneous
  Country: IT (occurrence: IT)
  Receive Date: 20200528
  Receipt Date: 20200528
  Transmission Date: 20200714
  Serious: Yes (Other)
  Sender: FDA-Public Use
  Company Number: IT-PFIZER INC-2020208661

PATIENT
  Age: 35 Year
  Sex: Male
  Weight: 100 kg

DRUGS (3)
  1. DAUNOBLASTINA [Concomitant]
     Active Substance: DAUNORUBICIN
     Dosage: 60 MG/M2 TWO FOR 3 DAYS
  2. MYLOTARG [Suspect]
     Active Substance: GEMTUZUMAB OZOGAMICIN
     Indication: ACUTE MYELOID LEUKAEMIA
     Dosage: 3 MG/M2, CYCLIC D1, D4, D7
  3. CYTARABINE. [Concomitant]
     Active Substance: CYTARABINE
     Dosage: 200 MG/M2 TWO FOR 7 DAYS IN CONTINUOUS INFUSION

REACTIONS (3)
  - Oedema peripheral [Recovered/Resolved]
  - Hyperpyrexia [Recovered/Resolved]
  - Sepsis [Recovered/Resolved]
